FAERS Safety Report 14965421 (Version 1)
Quarter: 2018Q2

REPORT INFORMATION
  Report Type: Spontaneous
  Country: US (occurrence: US)
  Receive Date: 20180601
  Receipt Date: 20180601
  Transmission Date: 20180711
  Serious: No
  Sender: FDA-Public Use
  Company Number: US-BAUSCH-BL-2018-003678

PATIENT
  Sex: Female
  Weight: 81.72 kg

DRUGS (1)
  1. ELIDEL [Suspect]
     Active Substance: PIMECROLIMUS
     Indication: URTICARIA
     Route: 061
     Dates: end: 201802

REACTIONS (3)
  - Lacrimation increased [Recovered/Resolved]
  - Excessive eye blinking [Recovered/Resolved]
  - Accidental exposure to product [Unknown]
